FAERS Safety Report 5282299-5 (Version None)
Quarter: 2007Q1

REPORT INFORMATION
  Report Type: 
  Country: None (occurrence: None)
  Receive Date: 20070331
  Receipt Date: 20070318
  Transmission Date: 20070707
  Serious: Yes (Other)
  Sender: FDA-Public Use
  Company Number: US-PFIZER INC-2007023860

PATIENT
  Sex: Female
  Weight: 68 kg

DRUGS (4)
  1. CHANTIX [Suspect]
     Indication: SMOKING CESSATION THERAPY
  2. KLONOPIN [Suspect]
     Indication: DEPRESSION
  3. NEXIUM [Concomitant]
  4. IBUPROFEN [Concomitant]

REACTIONS (2)
  - DEHYDRATION [None]
  - DEPRESSION [None]
